FAERS Safety Report 9767087 (Version 1)
Quarter: 2013Q4

REPORT INFORMATION
  Report Type: Spontaneous
  Country: US (occurrence: US)
  Receive Date: 20131217
  Receipt Date: 20131217
  Transmission Date: 20140711
  Serious: No
  Sender: FDA-Public Use
  Company Number: US-GLAXOSMITHKLINE-A1038829A

PATIENT
  Age: 80 Year
  Sex: Male

DRUGS (1)
  1. VOTRIENT [Suspect]
     Indication: SOFT TISSUE CANCER
     Dosage: 200MG TWICE PER DAY

REACTIONS (4)
  - Rash [Recovered/Resolved]
  - Hair colour changes [Unknown]
  - Hypertension [Unknown]
  - Electrocardiogram abnormal [Unknown]
